FAERS Safety Report 5949736-1 (Version None)
Quarter: 2008Q4

REPORT INFORMATION
  Report Type: 
  Country: None (occurrence: None)
  Receive Date: 20081112
  Receipt Date: 20081008
  Transmission Date: 20090506
  Serious: No
  Sender: FDA-Public Use
  Company Number: US-BAYER-200835321NA

PATIENT
  Age: 27 Year
  Sex: Female
  Weight: 87 kg

DRUGS (4)
  1. ULTRAVIST (PHARMACY BULK) [Suspect]
     Indication: COMPUTERISED TOMOGRAM ABDOMEN
     Dosage: TOTAL DAILY DOSE: 100 ML  UNIT DOSE: 500 ML
     Route: 042
     Dates: start: 20081008, end: 20081008
  2. CHEETAH BARIUM [Concomitant]
     Indication: COMPUTERISED TOMOGRAM ABDOMEN
     Route: 048
     Dates: start: 20081008, end: 20081008
  3. CHEETAH BARIUM [Concomitant]
     Route: 048
     Dates: start: 20081008, end: 20081008
  4. CHEETAH BARIUM [Concomitant]
     Route: 048
     Dates: start: 20081008, end: 20081008

REACTIONS (2)
  - PRURITUS [None]
  - URTICARIA [None]
